FAERS Safety Report 6242446-5 (Version None)
Quarter: 2009Q2

REPORT INFORMATION
  Report Type: 
  Country: None (occurrence: None)
  Receive Date: 20090622
  Receipt Date: 20090622
  Transmission Date: 20091009
  Serious: Yes (Life-Threatening, Disabling)
  Sender: FDA-Public Use
  Company Number: None

PATIENT
  Sex: Male
  Weight: 58.6 kg

DRUGS (1)
  1. PROTAMINE SULFATE [Suspect]
     Indication: HEPARIN NEUTRALISATION THERAPY
     Dosage: 350 MG/35 ML ONCE IV
     Route: 042
     Dates: start: 20090610, end: 20090610

REACTIONS (2)
  - HYPOTENSION [None]
  - PULMONARY HYPERTENSION [None]
